FAERS Safety Report 17429793 (Version 8)
Quarter: 2024Q3

REPORT INFORMATION
  Report Type: Spontaneous
  Country: US (occurrence: US)
  Receive Date: 20200218
  Receipt Date: 20240919
  Transmission Date: 20241016
  Serious: Yes (Other)
  Sender: PFIZER
  Company Number: US-PFIZER INC-2020066436

PATIENT
  Age: 67 Year
  Sex: Female
  Weight: 61.23 kg

DRUGS (4)
  1. PREMARIN [Suspect]
     Active Substance: ESTROGENS, CONJUGATED
     Indication: Hot flush
     Dosage: .625MG, TABLET, ONCE IN THE EVENING
     Dates: start: 1999
  2. PREMARIN [Suspect]
     Active Substance: ESTROGENS, CONJUGATED
     Indication: Mood swings
  3. PREMARIN [Suspect]
     Active Substance: ESTROGENS, CONJUGATED
     Indication: Malaise
  4. INDERAL [Concomitant]
     Active Substance: PROPRANOLOL HYDROCHLORIDE
     Dosage: UNK

REACTIONS (14)
  - Brain neoplasm [Unknown]
  - Ulcerative keratitis [Unknown]
  - Muscle twitching [Unknown]
  - Eye pain [Unknown]
  - Immunodeficiency [Unknown]
  - Systemic lupus erythematosus [Unknown]
  - Weight decreased [Recovering/Resolving]
  - Nervousness [Unknown]
  - Anxiety [Unknown]
  - Stress [Unknown]
  - Fungal infection [Not Recovered/Not Resolved]
  - Oral disorder [Not Recovered/Not Resolved]
  - Malaise [Unknown]
  - Intentional dose omission [Unknown]

NARRATIVE: CASE EVENT DATE: 20220701
